FAERS Safety Report 6140230-4 (Version None)
Quarter: 2009Q2

REPORT INFORMATION
  Report Type: 
  Country: None (occurrence: None)
  Receive Date: 20090401
  Receipt Date: 20090325
  Transmission Date: 20091009
  Serious: Yes (Hospitalization)
  Sender: FDA-Public Use
  Company Number: JP-B.I. PHARMACEUTICALS,INC./RIDGEFIELD-2009-BP-00520NB

PATIENT
  Sex: Female
  Weight: 61.3 kg

DRUGS (2)
  1. MICARDIS [Suspect]
     Indication: HYPERTENSION
     Dosage: 40MG
     Route: 048
     Dates: start: 20071101, end: 20081121
  2. MAGMITT [Concomitant]
     Indication: CONSTIPATION
     Dosage: 750MG
     Route: 048

REACTIONS (1)
  - PNEUMONITIS [None]
